FAERS Safety Report 18354578 (Version 1)
Quarter: 2020Q4

REPORT INFORMATION
  Report Type: Report from Study
  Country: US (occurrence: US)
  Receive Date: 20201007
  Receipt Date: 20201007
  Transmission Date: 20210114
  Serious: Yes (Hospitalization)
  Sender: FDA-Public Use
  Company Number: US-EISAI MEDICAL RESEARCH-EC-2020-081679

PATIENT
  Age: 72 Year
  Sex: Female

DRUGS (1)
  1. LENVIMA [Suspect]
     Active Substance: LENVATINIB
     Indication: PRODUCT USED FOR UNKNOWN INDICATION
     Route: 048
     Dates: start: 20200917, end: 20200928

REACTIONS (1)
  - Posterior reversible encephalopathy syndrome [Unknown]

NARRATIVE: CASE EVENT DATE: 20200928
